FAERS Safety Report 8481655-1 (Version None)
Quarter: 2012Q3

REPORT INFORMATION
  Report Type: 
  Country: None (occurrence: None)
  Receive Date: 20120702
  Receipt Date: 20120627
  Transmission Date: 20120928
  Serious: Yes (Other)
  Sender: FDA-Public Use
  Company Number: CA-ROCHE-1075238

PATIENT
  Sex: Female

DRUGS (9)
  1. METHOTREXATE [Concomitant]
  2. ACETAMINOPHEN [Concomitant]
     Indication: PREMEDICATION
     Route: 048
     Dates: start: 20111207, end: 20111207
  3. MABTHERA [Suspect]
     Indication: RHEUMATOID ARTHRITIS
     Route: 042
     Dates: start: 20111123, end: 20111207
  4. METHOTREXATE [Concomitant]
  5. PREDNISONE TAB [Concomitant]
  6. METHYLPREDNISOLONE [Concomitant]
     Indication: PREMEDICATION
     Route: 042
     Dates: start: 20111207, end: 20111207
  7. ARIMIDEX [Concomitant]
  8. PLAQUENIL [Concomitant]
  9. DIPHENHYDRAMINE HCL [Concomitant]
     Indication: PREMEDICATION
     Route: 048
     Dates: start: 20111207, end: 20111207

REACTIONS (1)
  - EYE DISORDER [None]
